FAERS Safety Report 17004798 (Version 2)
Quarter: 2019Q4

REPORT INFORMATION
  Report Type: Spontaneous
  Country: IT (occurrence: IT)
  Receive Date: 20191107
  Receipt Date: 20191204
  Transmission Date: 20200122
  Serious: Yes (Hospitalization)
  Sender: FDA-Public Use
  Company Number: IT-PFIZER INC-2019477731

PATIENT
  Age: 59 Year
  Sex: Female

DRUGS (6)
  1. NEBIVOLOL. [Suspect]
     Active Substance: NEBIVOLOL
     Dosage: 175 MG, TOTAL
     Route: 048
  2. DEPAMAG [Suspect]
     Active Substance: VALPROATE MAGNESIUM
     Dosage: 8000 MG, TOTAL
     Route: 048
  3. RANITIDINE. [Suspect]
     Active Substance: RANITIDINE
     Dosage: 900 MG, TOTAL
     Route: 048
  4. ZOLOFT [Suspect]
     Active Substance: SERTRALINE HYDROCHLORIDE
     Dosage: 3750 MG, TOTAL
     Route: 048
  5. TOPAMAX [Suspect]
     Active Substance: TOPIRAMATE
     Dosage: 2500 MG, TOTAL
     Route: 048
  6. SONIREM [Suspect]
     Active Substance: ZOLPIDEM TARTRATE
     Dosage: 30 ML, TOTAL
     Route: 048

REACTIONS (2)
  - Intentional self-injury [Recovered/Resolved]
  - Substance abuse [Recovered/Resolved]

NARRATIVE: CASE EVENT DATE: 20190403
